FAERS Safety Report 8485916-1 (Version None)
Quarter: 2012Q3

REPORT INFORMATION
  Report Type: 
  Country: None (occurrence: None)
  Receive Date: 20120703
  Receipt Date: 20120628
  Transmission Date: 20120928
  Serious: Yes (Other)
  Sender: FDA-Public Use
  Company Number: US-ABBOTT-12P-163-0951765-00

PATIENT
  Sex: Male
  Weight: 77.18 kg

DRUGS (7)
  1. TAMSULOSIN HCL [Concomitant]
     Indication: URINE FLOW DECREASED
  2. ANDROGEL [Suspect]
     Indication: BLOOD TESTOSTERONE DECREASED
     Dosage: 4 PUMPS PER DAY, 3 PUMPS
     Dates: start: 20050101
  3. NASONEX [Concomitant]
     Indication: HYPERSENSITIVITY
  4. SURMONTIL [Suspect]
     Indication: SLEEP DISORDER
     Dates: start: 20050101, end: 20050101
  5. OMEPRAZOLE [Concomitant]
     Indication: PRODUCT USED FOR UNKNOWN INDICATION
  6. ANDROGEL [Suspect]
  7. VYTORIN [Concomitant]
     Indication: BLOOD CHOLESTEROL INCREASED

REACTIONS (6)
  - FALL [None]
  - ATRIAL FLUTTER [None]
  - SLEEP APNOEA SYNDROME [None]
  - ATRIAL FIBRILLATION [None]
  - APPENDICITIS [None]
  - ABDOMINAL PAIN [None]
